FAERS Safety Report 11913206 (Version 1)
Quarter: 2016Q1

REPORT INFORMATION
  Report Type: Spontaneous
  Country: US (occurrence: US)
  Receive Date: 20160113
  Receipt Date: 20160113
  Transmission Date: 20160526
  Serious: Yes (Hospitalization, Other)
  Sender: FDA-Public Use
  Company Number: US-GLAXOSMITHKLINE-US2016GSK003817

PATIENT
  Sex: Female

DRUGS (1)
  1. VENTOLIN HFA [Suspect]
     Active Substance: ALBUTEROL SULFATE
     Indication: ASTHMA
     Dosage: UNK
     Dates: start: 2014

REACTIONS (9)
  - Pneumonia [Unknown]
  - Asthma [Unknown]
  - Tracheostomy [Unknown]
  - Drug ineffective [Unknown]
  - Bronchitis [Unknown]
  - Oxygen saturation abnormal [Unknown]
  - Medical induction of coma [Recovered/Resolved]
  - Mechanical ventilation [Unknown]
  - Respiratory failure [Unknown]

NARRATIVE: CASE EVENT DATE: 2015
